FAERS Safety Report 8258516-6 (Version None)
Quarter: 2012Q2

REPORT INFORMATION
  Report Type: 
  Country: None (occurrence: None)
  Receive Date: 20120404
  Receipt Date: 20120329
  Transmission Date: 20120825
  Serious: Yes (Other)
  Sender: FDA-Public Use
  Company Number: JP-PFIZER INC-2012033804

PATIENT
  Age: 78 Year
  Sex: Male
  Weight: 63 kg

DRUGS (11)
  1. ASPIRIN [Concomitant]
     Dosage: 100 MG, 1X/DAY
     Route: 048
  2. OLOPATADINE HCL [Concomitant]
     Dosage: 5 MG, 2X/DAY
     Route: 048
  3. METHYCOBAL [Concomitant]
     Dosage: UNK
     Route: 048
  4. ALLOPURINOL [Concomitant]
     Dosage: UNK
     Route: 048
  5. ALLEGRA [Concomitant]
  6. MAGMITT [Concomitant]
     Dosage: UNK
     Route: 048
  7. AVAPRO [Concomitant]
     Dosage: UNK
     Route: 048
  8. LYRICA [Suspect]
     Dosage: 50 MG/DAY
     Route: 048
     Dates: start: 20120213
  9. LYRICA [Suspect]
     Indication: NEURALGIA
     Dosage: 25 MG, 1X/DAY
     Route: 048
     Dates: start: 20120130, end: 20120130
  10. LYRICA [Suspect]
     Dosage: 100 MG/DAY
     Route: 048
     Dates: start: 20120131, end: 20120207
  11. DAIKENTYUTO [Concomitant]

REACTIONS (5)
  - PARKINSONISM [None]
  - LIMB INJURY [None]
  - DRUG INEFFECTIVE [None]
  - FALL [None]
  - FACE INJURY [None]
